FAERS Safety Report 18902013 (Version 1)
Quarter: 2021Q1

REPORT INFORMATION
  Report Type: Spontaneous
  Country: CA (occurrence: CA)
  Receive Date: 20210216
  Receipt Date: 20210216
  Transmission Date: 20210420
  Serious: Yes (Life-Threatening)
  Sender: FDA-Public Use
  Company Number: CA-TEVA-2021-CA-1878805

PATIENT
  Age: 31 Year
  Sex: Female

DRUGS (1)
  1. ATOMOXETINE HYDROCHLORIDE. [Suspect]
     Active Substance: ATOMOXETINE HYDROCHLORIDE
     Indication: PRODUCT USED FOR UNKNOWN INDICATION
     Route: 048

REACTIONS (8)
  - Decreased appetite [Unknown]
  - Dry mouth [Unknown]
  - Feeling of despair [Unknown]
  - Vomiting [Unknown]
  - Nausea [Unknown]
  - Depression [Unknown]
  - Suicidal ideation [Unknown]
  - Insomnia [Unknown]
